FAERS Safety Report 5773140-2 (Version None)
Quarter: 2008Q2

REPORT INFORMATION
  Report Type: 
  Country: None (occurrence: None)
  Receive Date: 20080615
  Receipt Date: 20080327
  Transmission Date: 20081010
  Serious: No
  Sender: FDA-Public Use
  Company Number: US-BAYER-200811360BCC

PATIENT
  Age: 64 Year
  Sex: Female
  Weight: 70 kg

DRUGS (7)
  1. ALEVE (CAPLET) [Suspect]
     Indication: ARTHRALGIA
     Dosage: TOTAL DAILY DOSE: 220 MG  UNIT DOSE: 220 MG
     Route: 048
     Dates: start: 20080320, end: 20080301
  2. ASPIRIN [Suspect]
     Indication: ARTHRALGIA
     Route: 048
     Dates: end: 20080301
  3. PLAVIX [Concomitant]
  4. BENICAR [Concomitant]
  5. METFORMIN [Concomitant]
  6. RANITIDINE [Concomitant]
  7. FEOSOL [Concomitant]

REACTIONS (1)
  - CONTUSION [None]
